FAERS Safety Report 20582421 (Version 3)
Quarter: 2025Q2

REPORT INFORMATION
  Report Type: Report from Study
  Country: US (occurrence: US)
  Receive Date: 20220311
  Receipt Date: 20250415
  Transmission Date: 20250716
  Serious: Yes (Hospitalization)
  Sender: RECORDATI
  Company Number: US-ORPHANEU-2022000901

PATIENT
  Sex: Female

DRUGS (1)
  1. CARBAGLU [Suspect]
     Active Substance: CARGLUMIC ACID
     Indication: Propionic acidaemia
     Dosage: 200 MILLIGRAM, TID

REACTIONS (3)
  - Haemorrhage [Recovering/Resolving]
  - Vomiting [Recovering/Resolving]
  - Circumstance or information capable of leading to medication error [Recovered/Resolved]
